FAERS Safety Report 18152041 (Version 1)
Quarter: 2020Q3

REPORT INFORMATION
  Report Type: Spontaneous
  Country: US (occurrence: US)
  Receive Date: 20200814
  Receipt Date: 20200814
  Transmission Date: 20201103
  Serious: Yes (Hospitalization, Other)
  Sender: FDA-Public Use
  Company Number: US-ELI_LILLY_AND_COMPANY-US202008002022

PATIENT
  Age: 54 Year
  Sex: Female
  Weight: 88.3 kg

DRUGS (22)
  1. ABEMACICLIB [Suspect]
     Active Substance: ABEMACICLIB
     Dosage: UNK UNK, UNKNOWN
     Route: 048
     Dates: start: 20200604
  2. PRILOSEC [Concomitant]
     Active Substance: OMEPRAZOLE MAGNESIUM
  3. BENEFIBER [CYAMOPSIS TETRAGONOLOBA GUM] [Concomitant]
     Active Substance: GUAR GUM
  4. LUPRON [Suspect]
     Active Substance: LEUPROLIDE ACETATE
     Indication: BREAST CANCER
     Dosage: 22.5 MG, OTHER (EVERY 4 WEEKS)
     Route: 065
     Dates: start: 20180820, end: 20190113
  5. LIDOCAINE. [Concomitant]
     Active Substance: LIDOCAINE
  6. VITAMIN D2 [Concomitant]
     Active Substance: ERGOCALCIFEROL
  7. AMLODIPINE [Concomitant]
     Active Substance: AMLODIPINE BESYLATE
  8. ALPRAZOLAM. [Concomitant]
     Active Substance: ALPRAZOLAM
  9. ESTRADIOL. [Concomitant]
     Active Substance: ESTRADIOL
  10. TESSALON [Concomitant]
     Active Substance: BENZONATATE
  11. LETROZOLE. [Suspect]
     Active Substance: LETROZOLE
     Dosage: 2.5 MG, DAILY
     Route: 048
     Dates: start: 20200604
  12. LUPRON [Suspect]
     Active Substance: LEUPROLIDE ACETATE
     Dosage: 22.5 MG, OTHER (EVERY 4 WEEKS)
     Route: 065
     Dates: start: 20190116, end: 20200517
  13. LETROZOLE. [Suspect]
     Active Substance: LETROZOLE
     Indication: BREAST CANCER
     Dosage: 2.5 MG, DAILY
     Route: 048
     Dates: start: 20180510, end: 20180603
  14. PRILOCAINE [Concomitant]
     Active Substance: PRILOCAINE
  15. METHIMAZOLE. [Concomitant]
     Active Substance: METHIMAZOLE
  16. VALTREX [Concomitant]
     Active Substance: VALACYCLOVIR HYDROCHLORIDE
  17. ABEMACICLIB [Suspect]
     Active Substance: ABEMACICLIB
     Indication: BREAST CANCER
     Dosage: 150 MG, BID
     Route: 048
     Dates: start: 20190115, end: 20200517
  18. LETROZOLE. [Suspect]
     Active Substance: LETROZOLE
     Dosage: 2.5 MG, DAILY
     Route: 048
     Dates: start: 20200115, end: 20200517
  19. ATIVAN [Concomitant]
     Active Substance: LORAZEPAM
  20. LUPRON [Suspect]
     Active Substance: LEUPROLIDE ACETATE
     Dosage: 22.5 MG, OTHER (EVERY 4 WEEKS)
     Route: 065
     Dates: start: 20200604
  21. HYDROCHLOROTHIAZIDE. [Concomitant]
     Active Substance: HYDROCHLOROTHIAZIDE
  22. MILK OF MAGNESIA [Concomitant]
     Active Substance: MAGNESIUM HYDROXIDE

REACTIONS (4)
  - Hypertension [Unknown]
  - Troponin increased [Unknown]
  - Supraventricular extrasystoles [Recovered/Resolved]
  - Blood creatine phosphokinase increased [Unknown]

NARRATIVE: CASE EVENT DATE: 202005
